FAERS Safety Report 7423486-7 (Version None)
Quarter: 2011Q2

REPORT INFORMATION
  Report Type: 
  Country: None (occurrence: None)
  Receive Date: 20110419
  Receipt Date: 20110210
  Transmission Date: 20111010
  Serious: Yes (Hospitalization, Other)
  Sender: FDA-Public Use
  Company Number: US-BAYER-200942555NA

PATIENT
  Age: 26 Year
  Sex: Female
  Weight: 66 kg

DRUGS (9)
  1. ZYRTEC [Concomitant]
     Dates: start: 20040101
  2. ACETAMINOPHEN [Concomitant]
     Dates: start: 20070101
  3. YAZ [Suspect]
     Indication: PREMENSTRUAL SYNDROME
  4. ADVIL LIQUI-GELS [Concomitant]
  5. CLARITIN [Concomitant]
     Dates: start: 20000101
  6. YAZ [Suspect]
     Indication: ORAL CONTRACEPTION
     Route: 048
     Dates: start: 20070621, end: 20091110
  7. MOTRIN [Concomitant]
  8. NASONEX [Concomitant]
     Dates: start: 20000101
  9. VALTREX [Concomitant]
     Dates: start: 20000701

REACTIONS (3)
  - CHOLELITHIASIS [None]
  - IRRITABLE BOWEL SYNDROME [None]
  - CHOLECYSTITIS CHRONIC [None]
